FAERS Safety Report 24781114 (Version 2)
Quarter: 2025Q1

REPORT INFORMATION
  Report Type: Report from Study
  Country: GB (occurrence: GB)
  Receive Date: 20241227
  Receipt Date: 20250123
  Transmission Date: 20250409
  Serious: Yes (Life-Threatening, Hospitalization, Disabling, Other)
  Sender: UCB
  Company Number: GB-UCBSA-2024067237

PATIENT
  Age: 58 Year
  Sex: Female
  Weight: 102 kg

DRUGS (3)
  1. BIMEKIZUMAB [Suspect]
     Active Substance: BIMEKIZUMAB
     Indication: Psoriatic arthropathy
     Dosage: 320 MILLIGRAM, MONTHLY (QM)
     Route: 058
     Dates: start: 20240516, end: 20240816
  2. CANDESARTAN [Concomitant]
     Active Substance: CANDESARTAN
     Indication: Product used for unknown indication
     Dosage: 16 MILLIGRAM, ONCE DAILY (QD)
     Dates: start: 20171220
  3. ANORO ELLIPTA [Concomitant]
     Active Substance: UMECLIDINIUM BROMIDE\VILANTEROL TRIFENATATE
     Indication: Product used for unknown indication
     Dosage: 55 MICROGRAM, ONCE DAILY (QD)

REACTIONS (3)
  - Small cell lung cancer [Not Recovered/Not Resolved]
  - Metastases to liver [Not Recovered/Not Resolved]
  - Drug ineffective [Unknown]

NARRATIVE: CASE EVENT DATE: 20240101
